FAERS Safety Report 12567125 (Version 18)
Quarter: 2021Q4

REPORT INFORMATION
  Report Type: Spontaneous
  Country: US (occurrence: US)
  Receive Date: 20160718
  Receipt Date: 20211217
  Transmission Date: 20220304
  Serious: Yes (Hospitalization)
  Sender: FDA-Public Use
  Company Number: US-PFIZER INC-2016342496

PATIENT
  Age: 72 Year
  Sex: Female
  Weight: 46.27 kg

DRUGS (15)
  1. LYRICA [Suspect]
     Active Substance: PREGABALIN
     Indication: Neuralgia
     Dosage: 25 MG ONCE A DAY (QHS X2 DAYS)
     Route: 048
  2. LYRICA [Suspect]
     Active Substance: PREGABALIN
     Indication: Scoliosis
     Dosage: 25 MG TWICE A DAY
     Route: 048
  3. LYRICA [Suspect]
     Active Substance: PREGABALIN
     Indication: Nerve compression
     Dosage: 25 MG THREE TIMES A DAY WITH FOOD
     Route: 048
  4. LYRICA [Suspect]
     Active Substance: PREGABALIN
     Indication: Arthralgia
     Dosage: 100 MG TWICE DAILY
  5. LYRICA [Suspect]
     Active Substance: PREGABALIN
     Indication: Hypoaesthesia
     Dosage: 100 MG THREE TIMES A DAY
     Route: 048
     Dates: start: 2016, end: 20190814
  6. LYRICA [Suspect]
     Active Substance: PREGABALIN
     Indication: Neuropathy peripheral
     Dosage: 100 MG THREE TIMES A DAY (100MG, TAKES ONE CAPSULE BY MOUTH THREE TIMES PER DAY)
     Route: 048
  7. LYRICA [Suspect]
     Active Substance: PREGABALIN
     Indication: Arachnoiditis
     Dosage: 100 MG, 4X/DAY (AS DIRECTED BY PHYSICIAN)
  8. TRAMADOL [Concomitant]
     Active Substance: TRAMADOL
     Dosage: UNK
  9. MINERALS\VITAMINS [Concomitant]
     Active Substance: MINERALS\VITAMINS
     Dosage: UNK
  10. HYDROCODONE [Concomitant]
     Active Substance: HYDROCODONE
     Dosage: UNK
  11. BACLOFEN [Concomitant]
     Active Substance: BACLOFEN
     Dosage: UNK
  12. CHONDROITIN SULFATE (BOVINE)\GLUCOSAMINE HYDROCHLORIDE [Concomitant]
     Active Substance: CHONDROITIN SULFATE (BOVINE)\GLUCOSAMINE HYDROCHLORIDE
     Dosage: UNK
  13. GABAPENTIN [Concomitant]
     Active Substance: GABAPENTIN
     Dosage: UNK
  14. CYMBALTA [Concomitant]
     Active Substance: DULOXETINE HYDROCHLORIDE
     Dosage: UNK
  15. MAGNESIUM [Concomitant]
     Active Substance: MAGNESIUM
     Dosage: UNK

REACTIONS (11)
  - COVID-19 [Unknown]
  - Drug ineffective [Unknown]
  - Feeling abnormal [Unknown]
  - Paraesthesia [Unknown]
  - Insomnia [Unknown]
  - Nerve injury [Unknown]
  - Burning sensation [Unknown]
  - Aphonia [Unknown]
  - Nervous system disorder [Unknown]
  - Prescription drug used without a prescription [Unknown]
  - Intentional product use issue [Unknown]

NARRATIVE: CASE EVENT DATE: 20200101
